FAERS Safety Report 4317592-3 (Version None)
Quarter: 2004Q1

REPORT INFORMATION
  Report Type: 
  Country: None (occurrence: None)
  Receive Date: 20040312
  Receipt Date: 20040227
  Transmission Date: 20041129
  Serious: Yes (Other)
  Sender: FDA-Public Use
  Company Number: USA-2004-0013180

PATIENT
  Age: 1 Year
  Sex: Female

DRUGS (2)
  1. CEFDITOREN PIVOXIL (SIMILAR TO NDA 21-222) (CEFDITOREN PIVOXIL) UNKNOW [Suspect]
     Indication: UPPER RESPIRATORY TRACT INFLAMMATION
     Dosage: SEE TEXT, ORAL
     Route: 048
  2. FLOMOX (CEFCAPENE PIVOXIL HYDROCHLORIDE) [Concomitant]

REACTIONS (5)
  - CARNITINE DECREASED [None]
  - CONVULSION [None]
  - DEPRESSED LEVEL OF CONSCIOUSNESS [None]
  - HYPERAMMONAEMIA [None]
  - HYPOGLYCAEMIA [None]
